FAERS Safety Report 11140127 (Version 1)
Quarter: 2015Q2

REPORT INFORMATION
  Report Type: Spontaneous
  Country: US (occurrence: US)
  Receive Date: 20150527
  Receipt Date: 20150527
  Transmission Date: 20150821
  Serious: No
  Sender: FDA-Public Use
  Company Number: US-BAYER-2015-223959

PATIENT
  Age: 62 Year
  Sex: Male
  Weight: 92.97 kg

DRUGS (2)
  1. BAYER LOW DOSE [Suspect]
     Active Substance: ASPIRIN
     Indication: ISCHAEMIC HEART DISEASE PROPHYLAXIS
     Dosage: 1 DF, QD
     Route: 048
     Dates: start: 201504
  2. ALEVE [Suspect]
     Active Substance: NAPROXEN SODIUM
     Indication: ARTHRALGIA
     Dosage: 2 DF, BID
     Route: 048
     Dates: start: 2014, end: 201505

REACTIONS (7)
  - Arthralgia [Not Recovered/Not Resolved]
  - Fluid retention [Unknown]
  - Weight decreased [Recovered/Resolved]
  - Medication error [None]
  - Peripheral swelling [Not Recovered/Not Resolved]
  - Extra dose administered [None]
  - Incorrect drug administration duration [None]
